FAERS Safety Report 23984406 (Version 1)
Quarter: 2024Q2

REPORT INFORMATION
  Report Type: Spontaneous
  Country: JP (occurrence: JP)
  Receive Date: 20240618
  Receipt Date: 20240618
  Transmission Date: 20240715
  Serious: Yes (Hospitalization)
  Sender: FDA-Public Use
  Company Number: JP-AZURITY PHARMACEUTICALS, INC.-JP-2024AZR000730

PATIENT
  Age: 54 Year
  Sex: Female

DRUGS (1)
  1. GLIADEL [Suspect]
     Active Substance: CARMUSTINE
     Indication: Malignant glioma
     Dosage: 30.8 MILLIGRAM
     Route: 026
     Dates: start: 20171127

REACTIONS (2)
  - Subcutaneous abscess [Recovered/Resolved]
  - Brain abscess [Recovered/Resolved]

NARRATIVE: CASE EVENT DATE: 20180101
